FAERS Safety Report 8254047-8 (Version None)
Quarter: 2012Q2

REPORT INFORMATION
  Report Type: 
  Country: None (occurrence: None)
  Receive Date: 20120402
  Receipt Date: 20120319
  Transmission Date: 20120825
  Serious: No
  Sender: FDA-Public Use
  Company Number: US-AMGEN-USASP2012017688

PATIENT
  Age: 50 Year
  Sex: Female

DRUGS (2)
  1. ENBREL [Suspect]
     Indication: RHEUMATOID ARTHRITIS
     Dosage: 50 MG, QWK
     Dates: start: 20110701
  2. HYDROXYCHLOROQUINE SULFATE [Concomitant]
     Dosage: 2 MG, UNK
     Dates: start: 20111201

REACTIONS (4)
  - PHOTOPSIA [None]
  - FEELING ABNORMAL [None]
  - TINNITUS [None]
  - ABNORMAL SENSATION IN EYE [None]
